FAERS Safety Report 18391609 (Version 1)
Quarter: 2020Q4

REPORT INFORMATION
  Report Type: Spontaneous
  Country: US (occurrence: US)
  Receive Date: 20201015
  Receipt Date: 20201015
  Transmission Date: 20210114
  Serious: No
  Sender: FDA-Public Use
  Company Number: None

PATIENT
  Age: 69 Year
  Sex: Male
  Weight: 141.52 kg

DRUGS (2)
  1. HUMIRA [Suspect]
     Active Substance: ADALIMUMAB
     Indication: RHEUMATOID ARTHRITIS
     Dosage: ?          OTHER FREQUENCY:EVERY 2 WEEKS;?
     Route: 058
     Dates: start: 201903
  2. PREDNISONE 10 MG TABLET. 10 MG [Suspect]
     Active Substance: PREDNISONE
     Indication: RHEUMATOID ARTHRITIS
     Dosage: TAKE 2 TABLETS BY MOUTH EVERY MORNING FOR 1 WEEK THEN TAKE 1 TABLET EVERY MORNING FOR 1 WEEK THEN TAKE 1/2 TABLET FOR 1 WEEK THEN STOP
     Dates: start: 202009

REACTIONS (2)
  - Therapy interrupted [None]
  - Infection [None]
